FAERS Safety Report 6846923-5 (Version None)
Quarter: 2010Q3

REPORT INFORMATION
  Report Type: 
  Country: None (occurrence: None)
  Receive Date: 20100715
  Receipt Date: 20070927
  Transmission Date: 20110219
  Serious: No
  Sender: FDA-Public Use
  Company Number: US-PFIZER INC-2007080588

PATIENT
  Sex: Male
  Weight: 83.181 kg

DRUGS (3)
  1. CHANTIX [Suspect]
     Indication: SMOKING CESSATION THERAPY
     Route: 048
     Dates: start: 20070923
  2. PERCOCET [Concomitant]
  3. LANTUS [Concomitant]

REACTIONS (3)
  - DECREASED APPETITE [None]
  - DIZZINESS [None]
  - FEELING HOT [None]
